FAERS Safety Report 20723075 (Version 4)
Quarter: 2022Q4

REPORT INFORMATION
  Report Type: Spontaneous
  Country: US (occurrence: US)
  Receive Date: 20220419
  Receipt Date: 20221019
  Transmission Date: 20230112
  Serious: Yes (Other)
  Sender: FDA-Public Use
  Company Number: US-NOVOPROD-909008

PATIENT
  Age: 82 Year
  Sex: Female

DRUGS (4)
  1. NOVOLOG MIX 70/30 [Suspect]
     Active Substance: INSULIN ASPART
     Indication: Type 2 diabetes mellitus
     Dosage: 20 UNITS
     Route: 058
  2. NOVOLOG MIX 70/30 [Suspect]
     Active Substance: INSULIN ASPART
     Dosage: UNK
     Route: 058
  3. NOVOLOG MIX 70/30 [Suspect]
     Active Substance: INSULIN ASPART
     Dosage: UNK
     Route: 058
  4. NOVOLOG MIX 70/30 [Suspect]
     Active Substance: INSULIN ASPART
     Dosage: UNK
     Route: 058

REACTIONS (7)
  - Fall [Unknown]
  - Upper limb fracture [Unknown]
  - Rib fracture [Unknown]
  - Lower limb fracture [Unknown]
  - Tooth fracture [Unknown]
  - Cerebrovascular accident [Unknown]
  - Myocardial infarction [Unknown]

NARRATIVE: CASE EVENT DATE: 20210101
